FAERS Safety Report 7509573-3 (Version None)
Quarter: 2011Q2

REPORT INFORMATION
  Report Type: 
  Country: None (occurrence: None)
  Receive Date: 20110519
  Receipt Date: 20110505
  Transmission Date: 20111010
  Serious: Yes (Other)
  Sender: FDA-Public Use
  Company Number: 2011-00503

PATIENT
  Age: 78 Year
  Sex: Female

DRUGS (5)
  1. ISOSORBIDE MONONITRATE [Suspect]
     Indication: PRODUCT USED FOR UNKNOWN INDICATION
  2. OMEPRAZOLE [Suspect]
     Indication: TEMPORAL ARTERITIS
     Dosage: 20 MG (20 MG, 1 IN 1 D)
  3. SIMVASTATIN [Suspect]
     Indication: PRODUCT USED FOR UNKNOWN INDICATION
     Dosage: 20 MG (20 MG, 1 IN 1 D)
  4. ATENOLOL [Suspect]
     Indication: PRODUCT USED FOR UNKNOWN INDICATION
  5. PREDNISOLONE [Suspect]
     Indication: TEMPORAL ARTERITIS
     Dosage: 9 MG (9MG, 1 IN 1 D)

REACTIONS (1)
  - CUTANEOUS LUPUS ERYTHEMATOSUS [None]
